FAERS Safety Report 16503545 (Version 2)
Quarter: 2019Q3

REPORT INFORMATION
  Report Type: Report from Study
  Country: US (occurrence: US)
  Receive Date: 20190701
  Receipt Date: 20190712
  Transmission Date: 20191004
  Serious: Yes (Death)
  Sender: FDA-Public Use
  Company Number: US-MYLANLABS-2018M1090711

PATIENT
  Age: 84 Year
  Sex: Male

DRUGS (1)
  1. TOBI [Suspect]
     Active Substance: TOBRAMYCIN
     Indication: BRONCHIECTASIS
     Dosage: 300 MILLIGRAM (INHALE EVERY 12 HOURS)

REACTIONS (3)
  - Death [Fatal]
  - Hypoacusis [Unknown]
  - Hearing aid user [Unknown]

NARRATIVE: CASE EVENT DATE: 20190603
